FAERS Safety Report 8893776 (Version 1)
Quarter: 2012Q4

REPORT INFORMATION
  Report Type: 
  Country: US (occurrence: US)
  Receive Date: 20121107
  Receipt Date: 20121107
  Transmission Date: 20130627
  Serious: No
  Sender: FDA-Public Use
  Company Number: US-AMGEN-USASP2011061833

PATIENT
  Age: 54 Year
  Sex: Female

DRUGS (8)
  1. ENBREL [Suspect]
     Indication: PRODUCT USED FOR UNKNOWN INDICATION
     Dosage: 50 mg, qwk
     Route: 058
  2. COZAAR [Concomitant]
     Dosage: 50 mg, UNK
     Route: 048
  3. WELLBUTRIN [Concomitant]
     Dosage: 100 mg, UNK
     Route: 048
  4. ALPRAZOLAM [Concomitant]
     Dosage: 0.25 mg, UNK
     Route: 048
  5. CELEXA                             /00582602/ [Concomitant]
     Dosage: 10 mg, UNK
     Route: 048
  6. CALCIUM 500+D [Concomitant]
     Dosage: UNK
     Route: 048
  7. VITAMIN B1 [Concomitant]
     Dosage: 100 mg, UNK
     Route: 048
  8. MULTIVITAMIN                       /00097801/ [Concomitant]
     Dosage: UNK
     Route: 048

REACTIONS (1)
  - Therapeutic response decreased [Unknown]
